FAERS Safety Report 8319979-0 (Version None)
Quarter: 2012Q2

REPORT INFORMATION
  Report Type: 
  Country: None (occurrence: None)
  Receive Date: 20120427
  Receipt Date: 20120420
  Transmission Date: 20120825
  Serious: Yes (Hospitalization, Other)
  Sender: FDA-Public Use
  Company Number: ES-ROCHE-1055329

PATIENT
  Sex: Male
  Weight: 74 kg

DRUGS (4)
  1. HERCEPTIN [Suspect]
     Indication: GASTRIC CANCER
     Dosage: LAST DOSE PRIOR TO SAE: 15/MAR/2012 AT 596MG
     Route: 042
     Dates: start: 20120315
  2. CISPLATIN [Suspect]
     Indication: GASTRIC CANCER
     Dosage: LAST DOSE PRIOR TO SAE: 15/MAR/2012 AT 80MG/M2
     Route: 042
     Dates: start: 20120315
  3. PERTUZUMAB [Suspect]
     Indication: GASTRIC CANCER
     Dosage: LAST DOSE PRIOR TO SAE: 15/MAR/2012 AT 840MG
     Route: 042
     Dates: start: 20120315
  4. XELODA [Suspect]
     Indication: GASTRIC CANCER
     Dosage: LAST DOSE PRIOR TO SAE: 15/MAR/2012 AT 1000MG/M2
     Route: 048
     Dates: start: 20120315

REACTIONS (1)
  - ENTERITIS [None]
